FAERS Safety Report 6087192-6 (Version None)
Quarter: 2009Q1

REPORT INFORMATION
  Report Type: 
  Country: None (occurrence: None)
  Receive Date: 20090219
  Receipt Date: 20081103
  Transmission Date: 20090719
  Serious: No
  Sender: FDA-Public Use
  Company Number: WAES 0811USA00289

PATIENT
  Age: 60 Year
  Sex: Male

DRUGS (9)
  1. ISENTRESS [Suspect]
     Indication: HIV INFECTION
     Dosage: PO
     Route: 048
  2. NORVIR [Concomitant]
  3. REMERON [Concomitant]
  4. REYATAZ [Concomitant]
  5. SOMA [Concomitant]
  6. TRICOR [Concomitant]
  7. VISTARIL [Concomitant]
  8. ASPIRIN [Concomitant]
  9. ENALAPRIL MALEATE [Concomitant]

REACTIONS (1)
  - ATRIAL FIBRILLATION [None]
